FAERS Safety Report 6054892-3 (Version None)
Quarter: 2009Q1

REPORT INFORMATION
  Report Type: 
  Country: None (occurrence: None)
  Receive Date: 20090128
  Receipt Date: 20090122
  Transmission Date: 20090719
  Serious: Yes (Death, Other)
  Sender: FDA-Public Use
  Company Number: JP-BAYER-200910218BYL

PATIENT
  Age: 39 Year
  Sex: Male

DRUGS (2)
  1. FLUDARA [Suspect]
     Indication: ACUTE LEUKAEMIA
     Dosage: AS USED: 30 MG
     Route: 065
  2. CYCLOSPORINE [Concomitant]
     Indication: PROPHYLAXIS AGAINST GRAFT VERSUS HOST DISEASE
     Route: 065

REACTIONS (2)
  - MULTI-ORGAN FAILURE [None]
  - SYSTEMIC CANDIDA [None]
